FAERS Safety Report 10478478 (Version 1)
Quarter: 2014Q3

REPORT INFORMATION
  Report Type: Spontaneous
  Country: US (occurrence: None)
  Receive Date: 20140924
  Receipt Date: 20140924
  Transmission Date: 20150326
  Serious: Yes (Hospitalization, Other)
  Sender: FDA-Public Use
  Company Number: ADR-2014-01725

PATIENT
  Age: 19 Year
  Sex: Male

DRUGS (1)
  1. BACLOFEN. [Suspect]
     Active Substance: BACLOFEN

REACTIONS (6)
  - Device alarm issue [None]
  - Viral upper respiratory tract infection [None]
  - Muscle twitching [None]
  - Insomnia [None]
  - Dyskinesia [None]
  - Drug dose omission [None]

NARRATIVE: CASE EVENT DATE: 20140911
